FAERS Safety Report 9955867 (Version 1)
Quarter: 2014Q1

REPORT INFORMATION
  Report Type: Report from Study
  Country: US (occurrence: US)
  Receive Date: 20140304
  Receipt Date: 20140304
  Transmission Date: 20141002
  Serious: No
  Sender: FDA-Public Use
  Company Number: US-ABBVIE-13P-163-1082856-00

PATIENT
  Age: 50 Year
  Sex: Female

DRUGS (4)
  1. HUMIRA [Suspect]
     Indication: RHEUMATOID ARTHRITIS
     Dates: start: 20130411
  2. AMLODIPINE [Concomitant]
     Indication: HYPERTENSION
  3. LEFLUNOMIDE [Concomitant]
     Indication: RHEUMATOID ARTHRITIS
     Dosage: IN THE MORNING
  4. ALEVE [Concomitant]
     Indication: RHEUMATOID ARTHRITIS
     Dosage: SINCE PRESCRIPTION FOR LEFLUNOMIDE EXPIRED

REACTIONS (2)
  - Injection site warmth [Recovered/Resolved]
  - Injection site swelling [Recovered/Resolved]
